FAERS Safety Report 9159387 (Version 3)
Quarter: 2013Q2

REPORT INFORMATION
  Report Type: Spontaneous
  Country: JP (occurrence: None)
  Receive Date: 20130212
  Receipt Date: 20130619
  Transmission Date: 20140414
  Serious: Yes (Death, Hospitalization)
  Sender: FDA-Public Use
  Company Number: TCI2013A00509

PATIENT
  Age: 63 Year
  Sex: Male

DRUGS (12)
  1. ACTOS [Suspect]
     Indication: DIABETES MELLITUS
     Route: 048
     Dates: start: 20121227, end: 20130114
  2. PIOGLITAZONE [Suspect]
     Indication: DIABETES MELLITUS
     Route: 048
     Dates: start: 20130115, end: 20130122
  3. GLUFAST (MITIGLINIDE CALCIUM) [Concomitant]
  4. PREDONINE (PREDNISOLONE) PER ORAL NOS [Concomitant]
  5. RENOPENT (ENALAPRIL MALEATE) [Concomitant]
  6. ALCENOL (ATENOLOL) [Concomitant]
  7. AMLODIPINE OD (AMLODIPINE BESILATE) [Concomitant]
  8. LIPOBLOCK (SIMVASTATIN) [Concomitant]
  9. SOLANAX (ALPRAZOLAM) [Concomitant]
  10. XYZAL [Concomitant]
  11. PARIET (RABEPRAZOLE SODIUM) [Concomitant]
  12. CORTICOSTEROIDS [Concomitant]

REACTIONS (9)
  - Hepatitis fulminant [None]
  - Interstitial lung disease [None]
  - Product substitution issue [None]
  - Heart rate decreased [None]
  - Continuous haemodiafiltration [None]
  - Coma [None]
  - Blood pressure decreased [None]
  - Blood glucose decreased [None]
  - Respiratory failure [None]
